FAERS Safety Report 8049630-9 (Version None)
Quarter: 2012Q1

REPORT INFORMATION
  Report Type: 
  Country: None (occurrence: None)
  Receive Date: 20120117
  Receipt Date: 20120109
  Transmission Date: 20120608
  Serious: Yes (Hospitalization)
  Sender: FDA-Public Use
  Company Number: US-ROCHE-1028964

PATIENT
  Age: 59 Year
  Sex: Male
  Weight: 93.3 kg

DRUGS (20)
  1. VALTREX [Concomitant]
     Dates: start: 20100910
  2. ETOPOSIDE [Suspect]
     Indication: DIFFUSE LARGE B-CELL LYMPHOMA
     Dates: start: 20100903, end: 20100903
  3. CARMUSTINE [Suspect]
     Indication: DIFFUSE LARGE B-CELL LYMPHOMA
     Dates: start: 20100902, end: 20100902
  4. DIPHENHYDRAMINE HCL [Concomitant]
     Dates: start: 20100909, end: 20100909
  5. CYTARABINE [Suspect]
     Indication: DIFFUSE LARGE B-CELL LYMPHOMA
     Dates: start: 20100903, end: 20100906
  6. PRILOSEC [Concomitant]
  7. MABTHERA [Suspect]
     Indication: DIFFUSE LARGE B-CELL LYMPHOMA
  8. DEXAMETHASONE [Concomitant]
     Dates: start: 20100902, end: 20100909
  9. LISINOPRIL [Concomitant]
     Dates: start: 20100910
  10. VANCOMYCIN [Concomitant]
     Dates: start: 20100909, end: 20100919
  11. COMPAZINE [Concomitant]
     Dates: start: 20100322
  12. INOTUZUMAB OZOGAMICIN [Suspect]
     Indication: DIFFUSE LARGE B-CELL LYMPHOMA
  13. MELPHALAN [Suspect]
     Indication: DIFFUSE LARGE B-CELL LYMPHOMA
     Dates: start: 20100907, end: 20100907
  14. ONDANSETRON [Concomitant]
     Dates: start: 20100902, end: 20100909
  15. FLUOXETINE [Concomitant]
  16. LASIX [Concomitant]
     Dates: start: 20100910
  17. ACTIGALL [Concomitant]
     Dates: start: 20100831
  18. ZICAM PRODUCT NOS [Concomitant]
     Dates: start: 20100801
  19. SIMVASTATIN [Concomitant]
  20. LORAZEPAM [Concomitant]

REACTIONS (1)
  - VENOOCCLUSIVE LIVER DISEASE [None]
